FAERS Safety Report 20862284 (Version 2)
Quarter: 2022Q2

REPORT INFORMATION
  Report Type: Spontaneous
  Country: US (occurrence: US)
  Receive Date: 20220523
  Receipt Date: 20220605
  Transmission Date: 20220721
  Serious: No
  Sender: FDA-Public Use
  Company Number: US-JNJFOC-20220544380

PATIENT
  Age: 9 Year
  Sex: Male

DRUGS (3)
  1. RISPERDAL [Suspect]
     Active Substance: RISPERIDONE
     Indication: Mood swings
     Dosage: 0.5 MG HALF IN MORNING, HALF IN AFTERNOON AND 1 OR 0.5 MG IN NIGHT
     Route: 048
     Dates: start: 20110120
  2. RISPERDAL [Suspect]
     Active Substance: RISPERIDONE
     Dosage: 0.5 MG HALF TWICE A DAY
     Route: 048
     Dates: start: 20110127
  3. RISPERDAL [Suspect]
     Active Substance: RISPERIDONE
     Dosage: 0.5 MG EVERY NIGHT
     Route: 048
     Dates: start: 20110331

REACTIONS (2)
  - Off label use [Unknown]
  - Product use in unapproved indication [Unknown]

NARRATIVE: CASE EVENT DATE: 20110120
